FAERS Safety Report 4613660-7 (Version None)
Quarter: 2005Q1

REPORT INFORMATION
  Report Type: 
  Country: None (occurrence: None)
  Receive Date: 20050321
  Receipt Date: 20050124
  Transmission Date: 20050727
  Serious: Yes (Hospitalization)
  Sender: FDA-Public Use
  Company Number: FRWYE363224JAN05

PATIENT
  Age: 33 Year
  Sex: Female

DRUGS (5)
  1. ENBREL [Suspect]
     Indication: AUTOIMMUNE DISORDER
     Route: 058
     Dates: start: 20041112, end: 20041122
  2. SULFASALAZINE [Suspect]
     Indication: BEHCET'S SYNDROME
     Route: 048
  3. KETOPROFEN [Concomitant]
     Indication: BEHCET'S SYNDROME
     Route: 048
     Dates: start: 20041110
  4. TRAMADOL HCL [Concomitant]
     Indication: BEHCET'S SYNDROME
     Route: 048
     Dates: start: 20041012
  5. CORTANCYL [Concomitant]
     Indication: BEHCET'S SYNDROME
     Route: 048

REACTIONS (1)
  - PLATELET COUNT DECREASED [None]
